FAERS Safety Report 16581032 (Version 1)
Quarter: 2019Q3

REPORT INFORMATION
  Report Type: Spontaneous
  Country: DE (occurrence: DE)
  Receive Date: 20190716
  Receipt Date: 20190716
  Transmission Date: 20191004
  Serious: Yes (Life-Threatening, Hospitalization)
  Sender: FDA-Public Use
  Company Number: DE-SA-2019SA190442

PATIENT
  Age: 78 Year
  Sex: Female

DRUGS (12)
  1. TOUJEO [Suspect]
     Active Substance: INSULIN GLARGINE
     Dosage: 76 IE-0-0
     Route: 058
  2. LEVODOPA/CARBIDOPA/ENTACAPONE [Concomitant]
     Active Substance: CARBIDOPA\ENTACAPONE\LEVODOPA
     Dosage: 100|25|200 MG, 1-1-1
     Route: 048
  3. OMEPRAZOLE. [Concomitant]
     Active Substance: OMEPRAZOLE
     Dosage: 20 MG, 1-0-0
     Route: 048
  4. APIDRA SOLOSTAR [Suspect]
     Active Substance: INSULIN GLULISINE
     Dosage: 24IU-0-20IU
     Route: 058
  5. BORNAPRINE [Concomitant]
     Active Substance: BORNAPRINE
     Dosage: 4 G, 1-0-0
     Route: 048
  6. LEVODOPA [Concomitant]
     Active Substance: LEVODOPA
     Dosage: 25 MG, 0-0-1
     Route: 048
  7. PRAMIPEXOLE. [Concomitant]
     Active Substance: PRAMIPEXOLE
     Dosage: 1.05 MG, 1-0-0
     Route: 048
  8. SIMVASTATIN. [Concomitant]
     Active Substance: SIMVASTATIN
     Dosage: 40 MG, 0-0-1
     Route: 048
  9. BECLOMETASONE;FORMOTEROL [Concomitant]
     Active Substance: BECLOMETHASONE\FORMOTEROL
     Dosage: 1-0-0
     Route: 048
  10. BISOPROLOL [Concomitant]
     Active Substance: BISOPROLOL
     Dosage: 5 MG, 1-0-0
     Route: 048
  11. GABAPENTIN. [Concomitant]
     Active Substance: GABAPENTIN
     Dosage: 100 MG, 0-0-1
     Route: 048
  12. ALUMINIUM OXIDE;MAGNESIUM HYDROXIDE [Concomitant]
     Dosage: 230|400 MVAL, 1-1-1
     Route: 048

REACTIONS (4)
  - Product administration error [Unknown]
  - Hypoglycaemia [Unknown]
  - Syncope [Unknown]
  - Accidental overdose [Unknown]
